FAERS Safety Report 19280957 (Version 2)
Quarter: 2021Q2

REPORT INFORMATION
  Report Type: Spontaneous
  Country: IT (occurrence: IT)
  Receive Date: 20210520
  Receipt Date: 20210528
  Transmission Date: 20210717
  Serious: Yes (Life-Threatening, Other)
  Sender: FDA-Public Use
  Company Number: IT-PFIZER INC-2021544556

PATIENT
  Sex: Male

DRUGS (3)
  1. LEVOTHYROXINE. [Concomitant]
     Active Substance: LEVOTHYROXINE
     Indication: CONGENITAL HYPOTHYROIDISM
     Dosage: UNK
     Route: 048
  2. VINCRISTINE SULFATE. [Suspect]
     Active Substance: VINCRISTINE SULFATE
     Dosage: UNK
  3. VINCRISTINE SULFATE. [Suspect]
     Active Substance: VINCRISTINE SULFATE
     Indication: MESOBLASTIC NEPHROMA
     Dosage: 0.05 MG/KG, QW

REACTIONS (5)
  - Neutropenia [Unknown]
  - Off label use [Unknown]
  - Growth retardation [Unknown]
  - Psychomotor skills impaired [Unknown]
  - Sepsis [Unknown]
